FAERS Safety Report 14376803 (Version 1)
Quarter: 2018Q1

REPORT INFORMATION
  Report Type: Spontaneous
  Country: US (occurrence: US)
  Receive Date: 20180111
  Receipt Date: 20180111
  Transmission Date: 20180509
  Serious: No
  Sender: FDA-Public Use
  Company Number: US-TARO-2017TAR00957

PATIENT
  Age: 50 Year
  Sex: Female
  Weight: 68.27 kg

DRUGS (4)
  1. CLOBETASOL PROPIONATE TOPICAL SOLUTION USP 0.05% [Suspect]
     Active Substance: CLOBETASOL PROPIONATE
     Dosage: UNK, 1X/DAY
     Route: 061
     Dates: start: 20171103
  2. CLOBETASOL [Concomitant]
     Active Substance: CLOBETASOL
     Dosage: UNK, 1X/DAY
     Route: 061
  3. CLOBETASOL PROPIONATE TOPICAL SOLUTION USP 0.05% [Suspect]
     Active Substance: CLOBETASOL PROPIONATE
     Indication: PSORIASIS
     Dosage: UNK, 1X/DAY
     Route: 061
     Dates: start: 2007, end: 2017
  4. CITALOPRAM [Concomitant]
     Active Substance: CITALOPRAM HYDROBROMIDE
     Dosage: 25 MG, 1X/DAY

REACTIONS (6)
  - Product quality issue [Not Recovered/Not Resolved]
  - Inappropriate schedule of drug administration [Not Recovered/Not Resolved]
  - Application site pain [Recovered/Resolved]
  - Accidental exposure to product [Recovered/Resolved]
  - Accidental overdose [Recovered/Resolved]
  - Incorrect drug administration duration [Not Recovered/Not Resolved]

NARRATIVE: CASE EVENT DATE: 2007
